FAERS Safety Report 5421226-4 (Version None)
Quarter: 2007Q3

REPORT INFORMATION
  Report Type: 
  Country: None (occurrence: None)
  Receive Date: 20070719
  Receipt Date: 20060623
  Transmission Date: 20080115
  Serious: Yes (Life-Threatening, Other)
  Sender: FDA-Public Use
  Company Number: OMPQ-PR-0606S-0486

PATIENT
  Age: 53 Year
  Sex: Male
  Weight: 125.1928 kg

DRUGS (2)
  1. OMNIPAQUE 140 [Suspect]
     Indication: CHEST PAIN
     Dosage: DOSE, SINGLE DOSE, CORONARY
     Dates: start: 20060618, end: 20060618
  2. INTEGRILIN [Concomitant]

REACTIONS (1)
  - ANAPHYLACTOID SHOCK [None]
